FAERS Safety Report 24532635 (Version 1)
Quarter: 2024Q4

REPORT INFORMATION
  Report Type: Spontaneous
  Country: US (occurrence: US)
  Receive Date: 20241022
  Receipt Date: 20241022
  Transmission Date: 20250115
  Serious: Yes (Other)
  Sender: RANBAXY
  Company Number: US-SUN PHARMACEUTICAL INDUSTRIES LTD-2024R1-474427

PATIENT
  Age: 39 Year
  Sex: Male

DRUGS (1)
  1. DOXYCYCLINE [Suspect]
     Active Substance: DOXYCYCLINE
     Indication: Lymphadenopathy mediastinal
     Dosage: UNK
     Route: 065

REACTIONS (2)
  - Blastomycosis [Recovered/Resolved]
  - Pulmonary blastomycosis [Recovered/Resolved]
